FAERS Safety Report 8567639-3 (Version None)
Quarter: 2012Q3

REPORT INFORMATION
  Report Type: 
  Country: None (occurrence: None)
  Receive Date: 20120803
  Receipt Date: 20120725
  Transmission Date: 20120928
  Serious: Yes (Death, Life-Threatening)
  Sender: FDA-Public Use
  Company Number: JP-CELGENEUS-087-50794-11041475

PATIENT
  Sex: Female
  Weight: 35 kg

DRUGS (12)
  1. CANDESARTAN CILEXETIL [Concomitant]
     Dosage: 1 DOSAGE FORMS
     Route: 048
  2. VITAMIN B12 [Concomitant]
     Dosage: 1500 MICROGRAM
     Route: 065
  3. LYRICA [Concomitant]
     Dosage: 75 MILLIGRAM
     Route: 048
     Dates: start: 20110329, end: 20110330
  4. SULFAMETHOXAZOLE AND TRIMETHOPRIM [Concomitant]
     Dosage: 1 DOSAGE FORMS
     Route: 048
     Dates: start: 20110326, end: 20110330
  5. LASIX [Concomitant]
     Dosage: 1 DOSAGE FORMS
     Route: 048
  6. VIDAZA [Suspect]
     Indication: MYELODYSPLASTIC SYNDROME
     Dosage: 75 MICROGRAM/SQ. METER
     Route: 058
     Dates: start: 20110323, end: 20110329
  7. ARMODAFINIL [Concomitant]
     Dosage: 100 MILLIGRAM
     Route: 065
     Dates: start: 20110326, end: 20110330
  8. EXJADE [Concomitant]
     Route: 065
  9. SIGMART [Concomitant]
     Dosage: 15 MILLIGRAM
     Route: 048
  10. NORVASC [Concomitant]
     Dosage: 2.5 MILLIGRAM
     Route: 048
  11. ISOSORBIDE DINITRATE [Concomitant]
     Dosage: 1 DOSAGE FORMS
     Route: 065
  12. CYTOTEC [Concomitant]
     Dosage: 600 MILLIGRAM
     Route: 065

REACTIONS (2)
  - HEPATITIS ACUTE [None]
  - PNEUMONIA [None]
